FAERS Safety Report 7729452-6 (Version None)
Quarter: 2011Q3

REPORT INFORMATION
  Report Type: 
  Country: None (occurrence: None)
  Receive Date: 20110901
  Receipt Date: 20110104
  Transmission Date: 20111222
  Serious: No
  Sender: FDA-Public Use
  Company Number: M2011-001C

PATIENT
  Sex: Male

DRUGS (1)
  1. ALLERGEN MIX [Suspect]
     Indication: HYPERSENSITIVITY
     Dosage: INJECTION

REACTIONS (2)
  - URTICARIA [None]
  - CHEST DISCOMFORT [None]
